FAERS Safety Report 7301107-1 (Version None)
Quarter: 2011Q1

REPORT INFORMATION
  Report Type: 
  Country: None (occurrence: None)
  Receive Date: 20110218
  Receipt Date: 20110215
  Transmission Date: 20110831
  Serious: Yes (Other)
  Sender: FDA-Public Use
  Company Number: US-BRISTOL-MYERS SQUIBB COMPANY-15552219

PATIENT
  Age: 54 Year
  Sex: Female
  Weight: 43 kg

DRUGS (8)
  1. MOTILIUM [Suspect]
     Dosage: TID
  2. GEODON [Suspect]
     Indication: SCHIZOAFFECTIVE DISORDER
     Dosage: SINCE 2004 OR 2005
  3. RISPERDONE [Suspect]
     Indication: SCHIZOAFFECTIVE DISORDER
  4. TOPAMAX [Concomitant]
     Indication: AFFECTIVE DISORDER
     Dosage: 1 DF: 100MG IN MRNG 200 MG IN NIGHT
  5. ABILIFY [Suspect]
     Indication: SCHIZOAFFECTIVE DISORDER
  6. ZYPREXA [Suspect]
     Indication: SCHIZOAFFECTIVE DISORDER
  7. PRIMIDONE [Concomitant]
  8. WELLBUTRIN [Concomitant]
     Indication: DEPRESSION

REACTIONS (10)
  - WEIGHT DECREASED [None]
  - MICTURITION DISORDER [None]
  - ULCER [None]
  - URINARY RETENTION [None]
  - GASTRITIS [None]
  - DYSPHAGIA [None]
  - GASTRIC DISORDER [None]
  - FLATULENCE [None]
  - TARDIVE DYSKINESIA [None]
  - WEIGHT INCREASED [None]
